FAERS Safety Report 13003808 (Version 2)
Quarter: 2021Q3

REPORT INFORMATION
  Report Type: Report from Study
  Country: US (occurrence: US)
  Receive Date: 20161206
  Receipt Date: 20210929
  Transmission Date: 20211014
  Serious: Yes (Other)
  Sender: FDA-Public Use
  Company Number: US-JAZZ-2016-US-021335

PATIENT
  Age: 58 Year
  Sex: Male

DRUGS (44)
  1. MAALOX MINI [ALUMINIUM HYDROXIDE;MAGNESIUM HYDROXIDE] [Suspect]
     Active Substance: ALUMINUM HYDROXIDE\MAGNESIUM HYDROXIDE
     Indication: PRODUCT USED FOR UNKNOWN INDICATION
  2. AUGMENTIN [Concomitant]
     Active Substance: AMOXICILLIN\CLAVULANATE POTASSIUM
  3. ALPRAZOLAM. [Concomitant]
     Active Substance: ALPRAZOLAM
  4. DECADRON [Concomitant]
     Active Substance: DEXAMETHASONE
  5. GADAVIST [Concomitant]
     Active Substance: GADOBUTROL
  6. VALTREX [Concomitant]
     Active Substance: VALACYCLOVIR HYDROCHLORIDE
  7. XYREM [Suspect]
     Active Substance: SODIUM OXYBATE
     Dosage: DOSE ADJUSTMENT
     Route: 048
     Dates: start: 2016, end: 2016
  8. QVAR [Suspect]
     Active Substance: BECLOMETHASONE DIPROPIONATE
     Indication: PRODUCT USED FOR UNKNOWN INDICATION
  9. CAMBIA [Concomitant]
     Active Substance: DICLOFENAC POTASSIUM
  10. ADDERALL [Concomitant]
     Active Substance: AMPHETAMINE ASPARTATE\AMPHETAMINE SULFATE\DEXTROAMPHETAMINE SACCHARATE\DEXTROAMPHETAMINE SULFATE
  11. PEPTO?BISMOL [Suspect]
     Active Substance: BISMUTH SUBSALICYLATE
     Indication: PRODUCT USED FOR UNKNOWN INDICATION
  12. CHERATUSSIN AC [Suspect]
     Active Substance: CODEINE PHOSPHATE\GUAIFENESIN
     Indication: PRODUCT USED FOR UNKNOWN INDICATION
  13. ARNUITY ELLIPTA [Suspect]
     Active Substance: FLUTICASONE FUROATE
     Indication: PRODUCT USED FOR UNKNOWN INDICATION
  14. PRILOSEC [Suspect]
     Active Substance: OMEPRAZOLE MAGNESIUM
     Indication: PRODUCT USED FOR UNKNOWN INDICATION
  15. BENADRYL ALLERGY [Concomitant]
     Active Substance: DIPHENHYDRAMINE HYDROCHLORIDE
  16. LIBRAX [Concomitant]
     Active Substance: CHLORDIAZEPOXIDE HYDROCHLORIDE\CLIDINIUM BROMIDE
  17. ASPIRIN (E.C.) [Concomitant]
     Active Substance: ASPIRIN
  18. AMLODIPINE BESYLATE. [Concomitant]
     Active Substance: AMLODIPINE BESYLATE
  19. OMEPRAZOLE. [Concomitant]
     Active Substance: OMEPRAZOLE
  20. ROPINIROLE HCL [Concomitant]
     Active Substance: ROPINIROLE HYDROCHLORIDE
  21. SPIRIVA [Concomitant]
     Active Substance: TIOTROPIUM BROMIDE MONOHYDRATE
  22. XYREM [Suspect]
     Active Substance: SODIUM OXYBATE
     Dosage: 4.5 G, BID
     Route: 048
     Dates: start: 2016, end: 2016
  23. SINGULAIR [Concomitant]
     Active Substance: MONTELUKAST SODIUM
  24. OMEGA 3 [FISH OIL;TOCOPHEROL] [Concomitant]
     Active Substance: FISH OIL\TOCOPHEROL
  25. GABAPENTIN. [Concomitant]
     Active Substance: GABAPENTIN
  26. TESSALON [Concomitant]
     Active Substance: BENZONATATE
  27. XYREM [Suspect]
     Active Substance: SODIUM OXYBATE
     Indication: NARCOLEPSY
     Dosage: 2.25 G, BID
     Route: 048
     Dates: start: 201607, end: 201607
  28. GAVISCON ADVANCE [SODIUM ALGINATE] [Suspect]
     Active Substance: SODIUM ALGINATE
     Indication: PRODUCT USED FOR UNKNOWN INDICATION
  29. AZOR [ALPRAZOLAM] [Concomitant]
     Active Substance: ALPRAZOLAM
  30. OLMESARTAN [Concomitant]
     Active Substance: OLMESARTAN
  31. RITALIN [Concomitant]
     Active Substance: METHYLPHENIDATE HYDROCHLORIDE
     Indication: PRODUCT USED FOR UNKNOWN INDICATION
  32. DICLOFENAC [Concomitant]
     Active Substance: DICLOFENAC
  33. ZIPSOR [Concomitant]
     Active Substance: DICLOFENAC POTASSIUM
  34. TORADOL [Concomitant]
     Active Substance: KETOROLAC TROMETHAMINE
  35. BREO ELLIPTA [Suspect]
     Active Substance: FLUTICASONE FUROATE\VILANTEROL TRIFENATATE
     Indication: PRODUCT USED FOR UNKNOWN INDICATION
  36. TESSALON [Suspect]
     Active Substance: BENZONATATE
     Indication: PRODUCT USED FOR UNKNOWN INDICATION
  37. TRIAZOLAM. [Concomitant]
     Active Substance: TRIAZOLAM
  38. VENLAFAXINE HYDROCHLORIDE. [Concomitant]
     Active Substance: VENLAFAXINE HYDROCHLORIDE
  39. AMITRIPTYLINE HCL [Concomitant]
     Active Substance: AMITRIPTYLINE
  40. NUVIGIL [Concomitant]
     Active Substance: ARMODAFINIL
  41. LYRICA [Concomitant]
     Active Substance: PREGABALIN
     Indication: PRODUCT USED FOR UNKNOWN INDICATION
  42. XYREM [Suspect]
     Active Substance: SODIUM OXYBATE
     Dosage: 5 G, QD
     Route: 048
     Dates: start: 2016
  43. XANAX [Concomitant]
     Active Substance: ALPRAZOLAM
  44. AZITHROMYCIN ANHYDROUS. [Concomitant]
     Active Substance: AZITHROMYCIN ANHYDROUS

REACTIONS (8)
  - Diverticulitis [Unknown]
  - Colonoscopy [Unknown]
  - Cough [Unknown]
  - Adjustment disorder with depressed mood [Unknown]
  - Drug ineffective [Unknown]
  - Restless legs syndrome [Unknown]
  - Irritable bowel syndrome [Unknown]
  - Insomnia [Unknown]

NARRATIVE: CASE EVENT DATE: 2016
